FAERS Safety Report 6082930-0 (Version None)
Quarter: 2009Q1

REPORT INFORMATION
  Report Type: 
  Country: None (occurrence: None)
  Receive Date: 20090204
  Receipt Date: 20080227
  Transmission Date: 20090719
  Serious: Yes (Life-Threatening, Hospitalization)
  Sender: FDA-Public Use
  Company Number: 272658

PATIENT
  Age: 74 Year
  Sex: Female

DRUGS (12)
  1. NOVOLOG [Suspect]
     Indication: TYPE 1 DIABETES MELLITUS
     Dosage: SLIDING SCALE, SUBCUTANEOUS
     Route: 058
     Dates: start: 20020101
  2. LANTUS [Suspect]
     Indication: TYPE 1 DIABETES MELLITUS
     Dosage: 8 IU, QD, SUBCUTANEOUS
     Route: 058
  3. METHOTREXATE [Concomitant]
  4. LIPITOR [Concomitant]
  5. NORVASC /00972401/ (AMLODIPINE) [Concomitant]
  6. ASPIRIN [Concomitant]
  7. DIOVAN [Concomitant]
  8. NEXIUM [Concomitant]
  9. SYNTHROID [Concomitant]
  10. IMDUR [Concomitant]
  11. PLAVIX [Concomitant]
  12. TOPROL-XL [Concomitant]

REACTIONS (1)
  - HYPOGLYCAEMIC UNCONSCIOUSNESS [None]
